FAERS Safety Report 6146069-8 (Version None)
Quarter: 2009Q2

REPORT INFORMATION
  Report Type: 
  Country: None (occurrence: None)
  Receive Date: 20090406
  Receipt Date: 20090406
  Transmission Date: 20091009
  Serious: Yes (Other)
  Sender: FDA-Public Use
  Company Number: None

PATIENT
  Age: 46 Year
  Sex: Female
  Weight: 72.5 kg

DRUGS (6)
  1. FERRLECIT [Suspect]
     Indication: IRON DEFICIENCY ANAEMIA
     Dosage: 125 MG QWEEK X 8 IV
     Route: 042
     Dates: start: 20090206
  2. FERRLECIT [Suspect]
     Indication: IRON DEFICIENCY ANAEMIA
     Dosage: 125 MG QWEEK X 8 IV
     Route: 042
     Dates: start: 20090213
  3. FERRLECIT [Suspect]
     Indication: IRON DEFICIENCY ANAEMIA
     Dosage: 125 MG QWEEK X 8 IV
     Route: 042
     Dates: start: 20090220
  4. FERRLECIT [Suspect]
     Indication: IRON DEFICIENCY ANAEMIA
     Dosage: 125 MG QWEEK X 8 IV
     Route: 042
     Dates: start: 20090306
  5. FERRLECIT [Suspect]
     Indication: IRON DEFICIENCY ANAEMIA
     Dosage: 125 MG QWEEK X 8 IV
     Route: 042
     Dates: start: 20090313
  6. FERRLECIT [Suspect]
     Indication: IRON DEFICIENCY ANAEMIA
     Dosage: 125 MG QWEEK X 8 IV
     Route: 042
     Dates: start: 20090320

REACTIONS (4)
  - ECCHYMOSIS [None]
  - INJECTION SITE DISCOLOURATION [None]
  - INJECTION SITE SWELLING [None]
  - INJECTION SITE WARMTH [None]
